FAERS Safety Report 10661498 (Version 1)
Quarter: 2014Q4

REPORT INFORMATION
  Report Type: Spontaneous
  Country: JP (occurrence: None)
  Receive Date: 20141216
  Receipt Date: 20141216
  Transmission Date: 20150529
  Serious: Yes (Other)
  Sender: FDA-Public Use
  Company Number: 201401210

PATIENT
  Age: 67 Year
  Sex: Female
  Weight: 52 kg

DRUGS (7)
  1. FML [Suspect]
     Active Substance: FLUOROMETHOLONE
     Route: 047
  2. TRUSOPT [Suspect]
     Active Substance: DORZOLAMIDE HYDROCHLORIDE
     Indication: POSTERIOR CAPSULE OPACIFICATION
     Route: 047
     Dates: start: 20140108, end: 20140108
  3. TRUSOPT [Suspect]
     Active Substance: DORZOLAMIDE HYDROCHLORIDE
     Indication: CONJUNCTIVITIS ALLERGIC
     Route: 047
     Dates: start: 20140108, end: 20140108
  4. AMLODIPINE TABLET [Concomitant]
  5. CRAVIT [Suspect]
     Active Substance: LEVOFLOXACIN
     Route: 047
     Dates: start: 201303
  6. TRUSOPT [Suspect]
     Active Substance: DORZOLAMIDE HYDROCHLORIDE
     Indication: MACULAR DEGENERATION
     Route: 047
     Dates: start: 20140108, end: 20140108
  7. MUCOSOVAN(AMBROXOL HYDROCHLORIDE) [Concomitant]

REACTIONS (3)
  - Iritis [None]
  - Choroidal detachment [None]
  - Uveitis [None]

NARRATIVE: CASE EVENT DATE: 20140109
